FAERS Safety Report 8214160-8 (Version None)
Quarter: 2012Q1

REPORT INFORMATION
  Report Type: 
  Country: None (occurrence: None)
  Receive Date: 20120316
  Receipt Date: 20120308
  Transmission Date: 20120608
  Serious: Yes (Hospitalization)
  Sender: FDA-Public Use
  Company Number: US-BAYER-2010-002114

PATIENT
  Age: 25 Year
  Sex: Female
  Weight: 71.655 kg

DRUGS (3)
  1. DROSPIRENONE AND ETHINYL ESTRADIOL [Suspect]
     Dosage: UNK
     Route: 048
     Dates: start: 20050101, end: 20090101
  2. METHYLPREDNISOLONE [Concomitant]
     Indication: NERVE COMPRESSION
     Dosage: AS REPORTED: 2 DAYS
     Dates: start: 20090907
  3. YASMIN [Suspect]
     Dosage: UNK
     Route: 048
     Dates: start: 20050101, end: 20090101

REACTIONS (1)
  - DEEP VEIN THROMBOSIS [None]
